FAERS Safety Report 7124983-4 (Version None)
Quarter: 2010Q4

REPORT INFORMATION
  Report Type: 
  Country: None (occurrence: None)
  Receive Date: 20101129
  Receipt Date: 20101115
  Transmission Date: 20110411
  Serious: Yes (Other)
  Sender: FDA-Public Use
  Company Number: ES-ASTRAZENECA-2010SE54566

PATIENT
  Age: 78 Year
  Sex: Male

DRUGS (7)
  1. MEROPENEM [Suspect]
     Indication: PNEUMONIA
     Route: 042
     Dates: start: 20100911, end: 20100917
  2. PARACETAMOL [Suspect]
     Indication: PYREXIA
     Route: 042
     Dates: start: 20100914
  3. ZYVOX [Suspect]
     Indication: PNEUMONIA
     Route: 042
     Dates: start: 20100908, end: 20100917
  4. ACFOL [Suspect]
     Route: 048
     Dates: start: 20100911
  5. FENITOINE [Suspect]
     Indication: CONVULSION
     Route: 042
     Dates: start: 20100907
  6. HYDROCORTISONE [Suspect]
     Route: 042
     Dates: start: 20100907
  7. CASPOFUNGINE [Suspect]
     Indication: PNEUMONIA
     Route: 042
     Dates: start: 20100920, end: 20100920

REACTIONS (2)
  - METABOLIC ACIDOSIS [None]
  - THROMBOCYTOPENIA [None]
